FAERS Safety Report 19470842 (Version 7)
Quarter: 2022Q4

REPORT INFORMATION
  Report Type: Report from Study
  Country: GB (occurrence: GB)
  Receive Date: 20210629
  Receipt Date: 20221201
  Transmission Date: 20230112
  Serious: Yes (Hospitalization, Disabling, Other)
  Sender: FDA-Public Use
  Company Number: GB-SA-2019SA307128

PATIENT
  Age: 8 Year
  Sex: Female
  Weight: 23.35 kg

DRUGS (28)
  1. IMODIUM [Suspect]
     Active Substance: LOPERAMIDE HYDROCHLORIDE
     Indication: Diarrhoea
     Dosage: 2 MG ONE CAPSULE UP TO FOUR TIMES A DAY
     Route: 065
  2. ACETAMINOPHEN [Suspect]
     Active Substance: ACETAMINOPHEN
     Indication: Product used for unknown indication
     Dosage: UNK UNK, QD PM
     Route: 048
  3. VANDETANIB [Suspect]
     Active Substance: VANDETANIB
     Indication: Brain stem glioma
     Dosage: 65 MILLIGRAM/SQ. METER, QD CUMULATIVE DOSE: 18262.2916 MG/M2
     Route: 048
     Dates: start: 20191009, end: 20191014
  4. VANDETANIB [Suspect]
     Active Substance: VANDETANIB
     Dosage: 100 MG, QOD (65 MILLIGRAM/SQ. METER, QD)?CUMULATIVE DOSE 266.667MG
     Route: 048
     Dates: start: 20191009, end: 20191014
  5. VANDETANIB [Suspect]
     Active Substance: VANDETANIB
     Dosage: 100 MG, QOD (65 MG/M2)?CUMULATIVE DOSE: 14497.9166 MG
     Route: 048
     Dates: start: 20191018, end: 20200207
  6. VANDETANIB [Suspect]
     Active Substance: VANDETANIB
     Dosage: 54 MILLIGRAM/SQ. METER, QD (65 MG/M2, QD)?CUMULATIVE DOSE: 21978.0 MG/M2
     Route: 048
     Dates: start: 20200212, end: 20200302
  7. VANDETANIB [Suspect]
     Active Substance: VANDETANIB
     Route: 048
     Dates: start: 20200212, end: 20200302
  8. VANDETANIB [Suspect]
     Active Substance: VANDETANIB
     Dosage: 65 MILLIGRAM/SQ. METER, QD?CUMULATIVE DOSE: 28600.0 MG/M2
     Route: 048
     Dates: start: 20200316, end: 20200420
  9. RANITIDINE [Suspect]
     Active Substance: RANITIDINE
     Indication: Gastrooesophageal reflux disease
     Dosage: 50 MG, BID
     Route: 065
     Dates: start: 20191018
  10. RANITIDINE [Suspect]
     Active Substance: RANITIDINE
     Route: 048
  11. LANSOPRAZOLE [Suspect]
     Active Substance: LANSOPRAZOLE
     Indication: Product used for unknown indication
     Route: 065
  12. EVEROLIMUS [Suspect]
     Active Substance: EVEROLIMUS
     Indication: Brain stem glioma
     Dosage: 5 MG ON MONDAY, WEDNESDAY AND FRIDAY AND 2.5 MG ON TUESDAY, THURSDAY, SATURDAY AND SUNDAY QD
     Route: 048
     Dates: start: 20190717, end: 20191014
  13. EVEROLIMUS [Suspect]
     Active Substance: EVEROLIMUS
     Dosage: 5 MG ON MONDAY, WEDNESDAY AND FRIDAY AND 2.5 MG ON TUESDAY, THURSDAY, SATURDAY AND SUNDAY
     Route: 048
     Dates: start: 20190717, end: 20200207
  14. EVEROLIMUS [Suspect]
     Active Substance: EVEROLIMUS
     Dosage: 5 MG MONDAY/WEDNESDAY/FRIDAY AND 2.5 MG TUESDAY/THURSDAY/SATURDAY/SUNDAY
     Route: 048
     Dates: start: 20190718, end: 20200207
  15. EVEROLIMUS [Suspect]
     Active Substance: EVEROLIMUS
     Dosage: 5 MG ON MONDAY, WEDNESDAY AND FRIDAY AND 2.5 MG ON TUESDAY, THURSDAY, SATURDAY AND SUNDAY
     Route: 048
     Dates: start: 20191001
  16. EVEROLIMUS [Suspect]
     Active Substance: EVEROLIMUS
     Dosage: TUESDAY/THURSDAY/SATURDAY/SUNDAY?CUMULATIVE DOSE: 1017.5 MG
     Route: 048
     Dates: start: 20200212
  17. EVEROLIMUS [Suspect]
     Active Substance: EVEROLIMUS
     Dosage: 5 MG QD, MONDAY/WEDNESDAY/FRIDAY?CUMULATIVE DOSE: 2035.0 MG
     Route: 048
     Dates: start: 20200212
  18. EVEROLIMUS [Suspect]
     Active Substance: EVEROLIMUS
     Dosage: 5 MG MONDAY/WEDNESDAY/FRIDAY AND 2.5 MG TUESDAY/THURSDAY/SATURDAY/SUNDAY
     Route: 048
     Dates: start: 20200213
  19. EVEROLIMUS [Suspect]
     Active Substance: EVEROLIMUS
     Dosage: CUMULATIVE DOSE: 1920.0 MG
     Route: 048
     Dates: start: 20210207
  20. EVEROLIMUS [Suspect]
     Active Substance: EVEROLIMUS
     Dosage: MONDAY/WEDNESDAY/FRIDAY?CUMULATIVE DOSE: 3840.0 MG
     Route: 048
     Dates: start: 20210207
  21. DEXAMETHASONE [Suspect]
     Active Substance: DEXAMETHASONE
     Indication: Product used for unknown indication
     Dosage: CUMULATIVE DOSE: 3698.39999 MG?9.2 MILLIGRAM, QD (4.6 MG)
     Route: 048
     Dates: start: 20200207, end: 20200221
  22. DEXAMETHASONE [Suspect]
     Active Substance: DEXAMETHASONE
     Dosage: CUMULATIVE DOSE: 2835.0 MG
     Route: 048
     Dates: start: 20200210
  23. DEXAMETHASONE [Suspect]
     Active Substance: DEXAMETHASONE
     Dosage: CUMULATIVE DOSE: 1424.5 MG
     Route: 048
     Dates: start: 20200212
  24. DEXAMETHASONE [Suspect]
     Active Substance: DEXAMETHASONE
     Dosage: CUMULATIVE DOSE: 656.0 MG
     Route: 048
     Dates: start: 20200215, end: 20200221
  25. DEXAMETHASONE [Concomitant]
     Active Substance: DEXAMETHASONE
     Indication: Product used for unknown indication
     Route: 065
     Dates: start: 20191101, end: 20200221
  26. DEXAMETHASONE [Concomitant]
     Active Substance: DEXAMETHASONE
     Route: 065
     Dates: end: 20200221
  27. COTRIMOXAZOLE [Concomitant]
     Active Substance: SULFAMETHOXAZOLE\TRIMETHOPRIM
     Indication: Product used for unknown indication
     Dosage: 720 MILLIGRAM, QD (360 MG, BID (7.5 ML) ON SATURDAYS AND SUNDAYS)
     Route: 048
  28. RANITIDINE [Concomitant]
     Active Substance: RANITIDINE
     Indication: Product used for unknown indication
     Route: 065
     Dates: start: 20191018

REACTIONS (28)
  - Hemiparesis [Recovered/Resolved]
  - Ataxia [Recovered/Resolved]
  - Malignant neoplasm progression [Unknown]
  - Electrocardiogram QT prolonged [Recovered/Resolved]
  - Disease progression [Unknown]
  - Brain stem glioma [Unknown]
  - Facial paralysis [Recovered/Resolved]
  - Facial paralysis [Recovered/Resolved]
  - Hypertension [Not Recovered/Not Resolved]
  - Abdominal distension [Recovered/Resolved]
  - Blood creatinine increased [Recovered/Resolved]
  - Blood cholesterol increased [Recovered/Resolved]
  - Hypophagia [Not Recovered/Not Resolved]
  - Alanine aminotransferase increased [Recovered/Resolved]
  - White blood cell count decreased [Not Recovered/Not Resolved]
  - Hypophosphataemia [Recovered/Resolved]
  - Lymphocyte count decreased [Not Recovered/Not Resolved]
  - Ocular hyperaemia [Recovered/Resolved]
  - Flatulence [Recovered/Resolved]
  - Neutrophil count decreased [Recovered/Resolved]
  - Ataxia [Not Recovered/Not Resolved]
  - Myoclonus [Recovered/Resolved]
  - Blood creatinine increased [Unknown]
  - Reflux gastritis [Recovered/Resolved]
  - Blood triglycerides increased [Unknown]
  - Gastrooesophageal reflux disease [Recovered/Resolved]
  - Medication error [Unknown]
  - Stomatitis [Recovered/Resolved]

NARRATIVE: CASE EVENT DATE: 20190730
